FAERS Safety Report 23061672 (Version 1)
Quarter: 2023Q4

REPORT INFORMATION
  Report Type: Spontaneous
  Country: EG (occurrence: EG)
  Receive Date: 20231013
  Receipt Date: 20231013
  Transmission Date: 20240110
  Serious: Yes (Other)
  Sender: FDA-Public Use
  Company Number: EG-HIKMA PHARMACEUTICALS USA INC.-EG-H14001-23-65865

PATIENT

DRUGS (2)
  1. CARBOPLATIN [Suspect]
     Active Substance: CARBOPLATIN
     Indication: Non-Hodgkin^s lymphoma
     Dosage: 450 MILLIGRAM, DAY 1 EVERY 21 DAYS
     Route: 042
  2. GEMCITABINE [Suspect]
     Active Substance: GEMCITABINE
     Indication: Non-Hodgkin^s lymphoma
     Dosage: 1800 MILLIGRAM, DAY 1, 8 EVERY 21 DAYS
     Route: 042

REACTIONS (3)
  - Normochromic normocytic anaemia [Unknown]
  - Anisocytosis [Unknown]
  - Oedema peripheral [Unknown]
